FAERS Safety Report 17934143 (Version 1)
Quarter: 2020Q2

REPORT INFORMATION
  Report Type: Spontaneous
  Country: US (occurrence: US)
  Receive Date: 20200623
  Receipt Date: 20200623
  Transmission Date: 20200714
  Serious: Yes (Life-Threatening, Disabling, Other)
  Sender: FDA-Public Use
  Company Number: None

PATIENT
  Age: 47 Year
  Sex: Female
  Weight: 145.15 kg

DRUGS (11)
  1. NP THYROID [Suspect]
     Active Substance: LEVOTHYROXINE\LIOTHYRONINE
     Dosage: FOR 4 DAYS A WEEK
     Route: 048
     Dates: start: 20190107, end: 20200602
  2. VITAMIN D3 [Concomitant]
     Active Substance: CHOLECALCIFEROL
  3. MAGNESIUM [Concomitant]
     Active Substance: MAGNESIUM
  4. POTASSIUM [Concomitant]
     Active Substance: POTASSIUM
  5. TYLENOL [Concomitant]
     Active Substance: ACETAMINOPHEN
  6. NP THYROID [Suspect]
     Active Substance: LEVOTHYROXINE\LIOTHYRONINE
     Indication: PAPILLARY THYROID CANCER
     Dosage: ?          QUANTITY:1PILL 90MG 2PILLS ;OTHER FREQUENCY:ONCE A DAY, 120 MG-4 DAYS AWEEK, 90 MG - 3 DAYS A WEEK;?
     Route: 048
     Dates: start: 20190107, end: 20200602
  7. SPINAL NEUROSTIMULATOR [Concomitant]
  8. FOLIC ACID. [Concomitant]
     Active Substance: FOLIC ACID
  9. CALCITIRIOL [Concomitant]
  10. VITAMIN E [Concomitant]
     Active Substance: .ALPHA.-TOCOPHEROL
  11. CALCITRATE W/D3 [Concomitant]

REACTIONS (11)
  - Depression [None]
  - Fatigue [None]
  - Hypertension [None]
  - Weight increased [None]
  - Constipation [None]
  - Onychoclasis [None]
  - Pain [None]
  - Anxiety [None]
  - Dry skin [None]
  - Apnoea [None]
  - Memory impairment [None]

NARRATIVE: CASE EVENT DATE: 20200502
